FAERS Safety Report 5266537-0 (Version None)
Quarter: 2007Q1

REPORT INFORMATION
  Report Type: 
  Country: None (occurrence: None)
  Receive Date: 20070315
  Receipt Date: 20070306
  Transmission Date: 20070707
  Serious: Yes (Other)
  Sender: FDA-Public Use
  Company Number: US-PFIZER INC-2006103230

PATIENT
  Sex: Male
  Weight: 72.6 kg

DRUGS (2)
  1. CADUET [Suspect]
     Indication: HYPERTENSION
     Dosage: TEXT:UNKNOWN-FREQ:UNKNOWN
     Route: 065
     Dates: start: 20060601, end: 20060701
  2. LIPITOR [Concomitant]
     Route: 065

REACTIONS (4)
  - DYSSTASIA [None]
  - FALL [None]
  - LIVER DISORDER [None]
  - MUSCLE SPASMS [None]
